FAERS Safety Report 25574880 (Version 1)
Quarter: 2025Q3

REPORT INFORMATION
  Report Type: Spontaneous
  Country: EU (occurrence: EU)
  Receive Date: 20250718
  Receipt Date: 20250718
  Transmission Date: 20251020
  Serious: Yes (Other)
  Sender: AUROBINDO
  Company Number: EU-BIOGARAN-B25001108

PATIENT
  Age: 42 Year
  Sex: Female

DRUGS (2)
  1. LACOSAMIDE [Suspect]
     Active Substance: LACOSAMIDE
     Indication: Partial seizures
     Dosage: 400 MILLIGRAM, ONCE A DAY (400 MG/DAY)
     Route: 065
  2. LAMOTRIGINE [Suspect]
     Active Substance: LAMOTRIGINE
     Indication: Partial seizures
     Dosage: 300 MILLIGRAM, ONCE A DAY (300 MG/DAY)
     Route: 065

REACTIONS (1)
  - Drug resistance [Unknown]
